FAERS Safety Report 5372217-3 (Version None)
Quarter: 2007Q2

REPORT INFORMATION
  Report Type: 
  Country: None (occurrence: None)
  Receive Date: 20070627
  Receipt Date: 20070619
  Transmission Date: 20071010
  Serious: Yes (Death)
  Sender: FDA-Public Use
  Company Number: B0476769A

PATIENT
  Age: 64 Year
  Sex: Male

DRUGS (1)
  1. ARTIST [Suspect]
     Indication: CARDIAC FAILURE
     Dosage: 3.75MG PER DAY
     Route: 048
     Dates: start: 20070209, end: 20070221

REACTIONS (1)
  - HEPATITIS FULMINANT [None]
